FAERS Safety Report 6971394-8 (Version None)
Quarter: 2010Q3

REPORT INFORMATION
  Report Type: 
  Country: None (occurrence: None)
  Receive Date: 20100908
  Receipt Date: 20100830
  Transmission Date: 20110219
  Serious: Yes (Hospitalization)
  Sender: FDA-Public Use
  Company Number: US-NAPPMUNDI-USA-2010-0045286

PATIENT
  Sex: Male

DRUGS (15)
  1. DILAUDID [Suspect]
     Indication: PRODUCT USED FOR UNKNOWN INDICATION
     Dosage: 1 MG, UNK
  2. BLINDED THERAPY [Suspect]
     Indication: TYPE 2 DIABETES MELLITUS
  3. METHYLPREDNISOLONE SODIUM SUCCINATE [Suspect]
     Indication: PRODUCT USED FOR UNKNOWN INDICATION
     Dosage: 30 MG, UNK
  4. SODIUM CHLORIDE [Suspect]
     Indication: PRODUCT USED FOR UNKNOWN INDICATION
     Dosage: UNK
  5. PENTASA [Concomitant]
  6. COMBIGAN [Concomitant]
  7. LUMIGAN [Concomitant]
  8. ASPIRIN [Concomitant]
  9. METRONIDAZOLE [Concomitant]
  10. AMARYL [Concomitant]
  11. JANUVIA [Concomitant]
  12. CRESTOR [Concomitant]
  13. FISH OIL [Concomitant]
  14. TENORMIN [Concomitant]
  15. LISINOPRIL [Concomitant]

REACTIONS (1)
  - SMALL INTESTINAL OBSTRUCTION [None]
